FAERS Safety Report 23445500 (Version 2)
Quarter: 2024Q1

REPORT INFORMATION
  Report Type: Spontaneous
  Country: TR (occurrence: TR)
  Receive Date: 20240126
  Receipt Date: 20240208
  Transmission Date: 20240409
  Serious: Yes (Other)
  Sender: FDA-Public Use
  Company Number: TR-LUNDBECK-DKLU3072823

PATIENT
  Age: 24 Year
  Sex: Female
  Weight: 60 kg

DRUGS (2)
  1. CIPRALEX [Suspect]
     Active Substance: ESCITALOPRAM OXALATE
     Indication: Suicidal ideation
     Route: 048
     Dates: start: 20220109
  2. CIPRALEX [Suspect]
     Active Substance: ESCITALOPRAM OXALATE
     Indication: Suicidal ideation
     Route: 048

REACTIONS (7)
  - Galactorrhoea [Unknown]
  - Blood prolactin increased [Unknown]
  - Self-medication [Unknown]
  - Inappropriate schedule of product administration [Unknown]
  - Breast swelling [Unknown]
  - Breast milk discolouration [Unknown]
  - Therapy cessation [Unknown]

NARRATIVE: CASE EVENT DATE: 20220109
